FAERS Safety Report 6898883-9 (Version None)
Quarter: 2010Q3

REPORT INFORMATION
  Report Type: 
  Country: None (occurrence: None)
  Receive Date: 20100802
  Receipt Date: 20071203
  Transmission Date: 20110219
  Serious: Yes (Other)
  Sender: FDA-Public Use
  Company Number: US-PFIZER INC-2007060655

PATIENT
  Sex: Female
  Weight: 52.2 kg

DRUGS (2)
  1. LYRICA [Suspect]
     Indication: NEURALGIA
  2. LYRICA [Suspect]
     Indication: FIBROMYALGIA

REACTIONS (7)
  - DRUG INEFFECTIVE [None]
  - HOT FLUSH [None]
  - HYPOAESTHESIA [None]
  - INSOMNIA [None]
  - OEDEMA PERIPHERAL [None]
  - PAIN [None]
  - PAIN IN EXTREMITY [None]
